FAERS Safety Report 14633730 (Version 1)
Quarter: 2018Q1

REPORT INFORMATION
  Report Type: Report from Study
  Country: None (occurrence: US)
  Receive Date: 20180314
  Receipt Date: 20180314
  Transmission Date: 20180509
  Serious: Yes (Other)
  Sender: FDA-Public Use
  Company Number: US-ABBVIE-17K-163-2047584-00

PATIENT
  Sex: Female

DRUGS (1)
  1. HUMIRA [Suspect]
     Active Substance: ADALIMUMAB
     Indication: RHEUMATOID ARTHRITIS
     Route: 058

REACTIONS (5)
  - Post procedural haemorrhage [Unknown]
  - Lymphocyte count decreased [Not Recovered/Not Resolved]
  - Tooth extraction [Unknown]
  - Neutrophil count decreased [Unknown]
  - Lymphocyte count increased [Not Recovered/Not Resolved]
